FAERS Safety Report 6900219-1 (Version None)
Quarter: 2010Q3

REPORT INFORMATION
  Report Type: 
  Country: None (occurrence: None)
  Receive Date: 20100803
  Receipt Date: 20100722
  Transmission Date: 20110219
  Serious: Yes (Hospitalization, Other)
  Sender: FDA-Public Use
  Company Number: DE-ROCHE-707861

PATIENT
  Sex: Female
  Weight: 62 kg

DRUGS (4)
  1. TRASTUZUMAB [Suspect]
     Route: 065
     Dates: end: 20100406
  2. TRASTUZUMAB [Suspect]
     Route: 065
     Dates: start: 20100507
  3. DOCETAXEL [Suspect]
     Route: 065
  4. CYCLOPHOSPHAMIDE [Suspect]
     Route: 065

REACTIONS (8)
  - ANAEMIA [None]
  - ASTHENIA [None]
  - C-REACTIVE PROTEIN INCREASED [None]
  - DYSPNOEA [None]
  - GENERAL PHYSICAL HEALTH DETERIORATION [None]
  - LEUKOPENIA [None]
  - NAUSEA [None]
  - PROTHROMBIN TIME PROLONGED [None]
